FAERS Safety Report 12467235 (Version 4)
Quarter: 2020Q1

REPORT INFORMATION
  Report Type: Report from Study
  Country: US (occurrence: US)
  Receive Date: 20160615
  Receipt Date: 20200122
  Transmission Date: 20200409
  Serious: Yes (Hospitalization, Other)
  Sender: FDA-Public Use
  Company Number: US-ROCHE-1775352

PATIENT
  Sex: Male
  Weight: 64.92 kg

DRUGS (20)
  1. KCL [Concomitant]
     Active Substance: POTASSIUM CHLORIDE
     Route: 048
  2. GABAPENTIN. [Concomitant]
     Active Substance: GABAPENTIN
  3. TOPAMAX [Concomitant]
     Active Substance: TOPIRAMATE
  4. TRILEPTAL [Concomitant]
     Active Substance: OXCARBAZEPINE
  5. LEVOTHYROXINE. [Concomitant]
     Active Substance: LEVOTHYROXINE
     Route: 048
  6. RITUXAN [Suspect]
     Active Substance: RITUXIMAB
     Indication: B-CELL LYMPHOMA
     Route: 042
     Dates: start: 2013, end: 2014
  7. PREDNISONE. [Concomitant]
     Active Substance: PREDNISONE
     Dosage: DAY BEFORE RITUXAN INFUSION
     Route: 048
  8. LEXAPRO [Concomitant]
     Active Substance: ESCITALOPRAM OXALATE
  9. ALLOPURINOL. [Concomitant]
     Active Substance: ALLOPURINOL
     Route: 048
  10. ELITEK [Concomitant]
     Active Substance: RASBURICASE
  11. DEXAMETHASONE. [Concomitant]
     Active Substance: DEXAMETHASONE
  12. MAGNESIUM [Concomitant]
     Active Substance: MAGNESIUM
     Route: 048
  13. DECADRON [Concomitant]
     Active Substance: DEXAMETHASONE
     Dosage: WITH RITUXAN INFUSION
     Route: 065
  14. CYTOXAN [Concomitant]
     Active Substance: CYCLOPHOSPHAMIDE
  15. OMPRAZOLE [Concomitant]
     Active Substance: OMEPRAZOLE
     Route: 048
  16. RIBOFLAVIN [Concomitant]
     Active Substance: RIBOFLAVIN
     Route: 048
  17. GAZYVA [Suspect]
     Active Substance: OBINUTUZUMAB
     Indication: LYMPHOMA
     Route: 042
     Dates: start: 2019
  18. NORTRIPTYLINE [Concomitant]
     Active Substance: NORTRIPTYLINE
  19. MORPHINE [Concomitant]
     Active Substance: MORPHINE
  20. BENDAMUSTINE [Concomitant]
     Active Substance: BENDAMUSTINE
     Indication: B-CELL LYMPHOMA
     Route: 042
     Dates: start: 201503, end: 201508

REACTIONS (22)
  - Migraine [Recovered/Resolved]
  - Dizziness [Unknown]
  - Hallucination [Recovered/Resolved]
  - Swelling [Recovered/Resolved]
  - Confusional state [Not Recovered/Not Resolved]
  - Fall [Unknown]
  - Arthralgia [Not Recovered/Not Resolved]
  - Rash [Recovered/Resolved]
  - Vertigo [Unknown]
  - Speech disorder [Recovered/Resolved]
  - Progressive multifocal leukoencephalopathy [Recovered/Resolved]
  - Spinocerebellar ataxia [Unknown]
  - Lymphoma [Not Recovered/Not Resolved]
  - Syncope [Recovered/Resolved]
  - Neuropathy peripheral [Not Recovered/Not Resolved]
  - Memory impairment [Not Recovered/Not Resolved]
  - Pruritus [Recovered/Resolved]
  - Drug intolerance [Not Recovered/Not Resolved]
  - Platelet count decreased [Recovered/Resolved]
  - Intracranial pressure increased [Recovered/Resolved]
  - Headache [Unknown]
  - Erythema [Recovered/Resolved]

NARRATIVE: CASE EVENT DATE: 2014
